FAERS Safety Report 4767908-9 (Version None)
Quarter: 2005Q3

REPORT INFORMATION
  Report Type: 
  Country: None (occurrence: None)
  Receive Date: 20050912
  Receipt Date: 20050906
  Transmission Date: 20060218
  Serious: Yes (Other)
  Sender: FDA-Public Use
  Company Number: 2005120023

PATIENT
  Sex: Male
  Weight: 74.8435 kg

DRUGS (6)
  1. CELEBREX [Suspect]
     Indication: OSTEOARTHRITIS
     Dosage: 200 MG (200 MG, 1 IN 1 D),
  2. METHADONE (METHADONE) [Suspect]
     Indication: PAIN
     Dosage: (3 IN 1 D),
  3. VIOXX [Suspect]
     Indication: OSTEOARTHRITIS
  4. NORFLEX [Suspect]
     Indication: PAIN
  5. NAPROXEN [Suspect]
     Indication: PAIN
  6. ADVIL [Suspect]
     Indication: PAIN

REACTIONS (11)
  - BLOOD CHOLESTEROL INCREASED [None]
  - DRUG INTERACTION [None]
  - FALL [None]
  - FEELING ABNORMAL [None]
  - HEAD INJURY [None]
  - HEADACHE [None]
  - INCORRECT DRUG ADMINISTRATION DURATION [None]
  - INSOMNIA [None]
  - MENTAL IMPAIRMENT [None]
  - NAUSEA [None]
  - PAIN IN EXTREMITY [None]
